FAERS Safety Report 6534157-3 (Version None)
Quarter: 2010Q1

REPORT INFORMATION
  Report Type: 
  Country: None (occurrence: None)
  Receive Date: 20100112
  Receipt Date: 20100108
  Transmission Date: 20100710
  Serious: Yes (Life-Threatening, Hospitalization)
  Sender: FDA-Public Use
  Company Number: AU-ASTRAZENECA-2010SE00943

PATIENT
  Age: 0 Day
  Sex: Male

DRUGS (7)
  1. SEROQUEL [Interacting]
     Indication: DRUG EXPOSURE DURING PREGNANCY
     Dosage: ONE IN ONE DAY
     Route: 064
  2. HALOPERIDOL [Suspect]
     Indication: DRUG EXPOSURE DURING PREGNANCY
     Dosage: 7.5 MG TO 12.5 MG DAILY
     Route: 064
  3. VENLAFAXINE [Interacting]
     Indication: DRUG EXPOSURE DURING PREGNANCY
     Route: 064
  4. SERTRALINE HCL [Interacting]
     Indication: DRUG EXPOSURE DURING PREGNANCY
     Route: 064
  5. FOLIC ACID [Concomitant]
  6. ELEVIT [Concomitant]
  7. EPIDURAL ANESTHETICS [Concomitant]

REACTIONS (8)
  - CAESAREAN SECTION [None]
  - DRUG INTERACTION [None]
  - JAUNDICE [None]
  - MATERNAL DRUGS AFFECTING FOETUS [None]
  - NEONATAL RESPIRATORY DISTRESS SYNDROME [None]
  - PREMATURE BABY [None]
  - RESPIRATORY DEPRESSION [None]
  - WITHDRAWAL SYNDROME [None]
